FAERS Safety Report 8134149-7 (Version None)
Quarter: 2012Q1

REPORT INFORMATION
  Report Type: 
  Country: None (occurrence: None)
  Receive Date: 20120213
  Receipt Date: 20120213
  Transmission Date: 20120608
  Serious: Yes (Life-Threatening, Hospitalization)
  Sender: FDA-Public Use
  Company Number: None

PATIENT
  Age: 64 Year
  Sex: Male
  Weight: 118.3 kg

DRUGS (1)
  1. ACETAMINOPHEN [Suspect]
     Indication: HYPERSENSITIVITY
     Dosage: 1 TAB PRN PO
     Route: 048
     Dates: start: 20120110, end: 20120110

REACTIONS (1)
  - RASH [None]
